FAERS Safety Report 8606476-8 (Version None)
Quarter: 2012Q3

REPORT INFORMATION
  Report Type: 
  Country: None (occurrence: None)
  Receive Date: 20120820
  Receipt Date: 20120817
  Transmission Date: 20120928
  Serious: No
  Sender: FDA-Public Use
  Company Number: US-BAYER-2012-084908

PATIENT
  Age: 72 Year
  Sex: Male

DRUGS (1)
  1. GADAVIST [Suspect]
     Indication: NUCLEAR MAGNETIC RESONANCE IMAGING
     Dosage: 7 ML, ONCE
     Dates: start: 20120816, end: 20120816

REACTIONS (1)
  - URTICARIA [None]
